FAERS Safety Report 9116318 (Version 1)
Quarter: 2013Q1

REPORT INFORMATION
  Report Type: Spontaneous
  Country: GB (occurrence: GB)
  Receive Date: 20130225
  Receipt Date: 20130225
  Transmission Date: 20140127
  Serious: Yes (Other)
  Sender: FDA-Public Use
  Company Number: GB-TEVA-388179ISR

PATIENT
  Age: 63 Year
  Sex: Male
  Weight: 107 kg

DRUGS (7)
  1. ATORVASTATIN [Suspect]
     Dates: start: 20121130
  2. BISOPROLOL [Concomitant]
     Dates: start: 20121005, end: 20130125
  3. ANGEZE/MONOMAX SR [Concomitant]
     Dates: start: 20121130, end: 20121228
  4. OMACOR [Concomitant]
     Dates: start: 20121130, end: 20121228
  5. RAMIPRIL [Concomitant]
     Dates: start: 20121130, end: 20121228
  6. CLOPIDOGREL [Concomitant]
     Dates: start: 20121130, end: 20121228
  7. LIPITOR [Concomitant]

REACTIONS (2)
  - Mouth ulceration [Recovered/Resolved]
  - Product substitution issue [Unknown]
